FAERS Safety Report 7813266-2 (Version None)
Quarter: 2011Q4

REPORT INFORMATION
  Report Type: 
  Country: None (occurrence: None)
  Receive Date: 20111013
  Receipt Date: 20110930
  Transmission Date: 20120403
  Serious: Yes (Hospitalization, Other)
  Sender: FDA-Public Use
  Company Number: US-ELI_LILLY_AND_COMPANY-US201106008145

PATIENT
  Sex: Female

DRUGS (6)
  1. FORTEO [Suspect]
     Dosage: 20 UG, QD
     Route: 065
     Dates: start: 20110501, end: 20110601
  2. FORTEO [Suspect]
     Dosage: 20 UG, QD
     Route: 065
     Dates: start: 20110926
  3. ENBREL [Concomitant]
  4. FORTEO [Suspect]
     Indication: OSTEOPOROSIS
     Dosage: 20 UG, QD
     Route: 065
     Dates: start: 20110401, end: 20110501
  5. PREDNISONE [Concomitant]
  6. METHOTREXATE [Concomitant]

REACTIONS (11)
  - RHEUMATOID ARTHRITIS [None]
  - FOOT DEFORMITY [None]
  - MEDICATION ERROR [None]
  - MOBILITY DECREASED [None]
  - PAIN IN EXTREMITY [None]
  - OEDEMA PERIPHERAL [None]
  - LIMB INJURY [None]
  - DIARRHOEA HAEMORRHAGIC [None]
  - PAIN [None]
  - BACTERIAL INFECTION [None]
  - BONE DISORDER [None]
